FAERS Safety Report 6308064-5 (Version None)
Quarter: 2009Q3

REPORT INFORMATION
  Report Type: 
  Country: None (occurrence: None)
  Receive Date: 20090813
  Receipt Date: 20090803
  Transmission Date: 20100115
  Serious: Yes (Hospitalization)
  Sender: FDA-Public Use
  Company Number: B0587436A

PATIENT
  Age: 51 Year
  Sex: Male

DRUGS (16)
  1. RYTHMOL [Suspect]
     Dosage: 3TAB PER DAY
     Route: 048
     Dates: start: 20010101, end: 20081211
  2. BISOPROLOL [Suspect]
     Dosage: 10MG PER DAY
     Route: 065
     Dates: end: 20081211
  3. UNICORDIUM [Suspect]
     Route: 065
     Dates: end: 20081211
  4. ALDALIX [Concomitant]
     Indication: HYPERTENSION
     Dosage: 1CAP PER DAY
     Route: 065
  5. KARDEGIC [Concomitant]
     Route: 048
  6. TAHOR [Concomitant]
     Dosage: 120MG PER DAY
     Route: 048
  7. METFORMIN HCL [Concomitant]
     Dosage: 3U PER DAY
     Route: 048
  8. LYRICA [Concomitant]
     Indication: EPILEPSY
     Dosage: 150MG THREE TIMES PER DAY
     Route: 048
  9. RIVOTRIL [Concomitant]
     Indication: EPILEPSY
     Dosage: 2.5MGML PER DAY
     Route: 048
  10. TEMESTA [Concomitant]
     Indication: DEPRESSION
     Dosage: 2.5MG TWICE PER DAY
     Route: 048
  11. CITALOPRAM HYDROBROMIDE [Concomitant]
     Route: 065
  12. NICERGOLINE [Concomitant]
     Route: 048
  13. SERETIDE [Concomitant]
     Route: 055
  14. LANZOR [Concomitant]
     Dosage: 30MG PER DAY
     Route: 048
  15. SPIRIVA [Concomitant]
     Indication: CHRONIC OBSTRUCTIVE PULMONARY DISEASE
     Route: 055
  16. OSYROL LASIX [Concomitant]
     Indication: HYPERTENSION

REACTIONS (4)
  - ASTHENIA [None]
  - ATRIOVENTRICULAR BLOCK FIRST DEGREE [None]
  - BRADYCARDIA [None]
  - ELECTROCARDIOGRAM QRS COMPLEX PROLONGED [None]
